FAERS Safety Report 20532741 (Version 1)
Quarter: 2022Q1

REPORT INFORMATION
  Report Type: Spontaneous
  Country: US (occurrence: None)
  Receive Date: 20220301
  Receipt Date: 20220301
  Transmission Date: 20220423
  Serious: Yes (Hospitalization)
  Sender: FDA-Public Use
  Company Number: None

PATIENT
  Age: 65 Year
  Sex: Female

DRUGS (2)
  1. ENVARSUS XR [Suspect]
     Active Substance: TACROLIMUS
     Indication: Renal transplant
     Dosage: FREQUENCY : DAILY;?TAKE 4 TABLETS (4 MG TOTAL) BY MOUTH EVERY MORNING BEFORE BREAKFAST
     Route: 048
     Dates: start: 20201024
  2. MYCOPHENOLATE MOFETIL [Concomitant]
     Active Substance: MYCOPHENOLATE MOFETIL

REACTIONS (1)
  - Toe operation [None]

NARRATIVE: CASE EVENT DATE: 20220217
